FAERS Safety Report 8320807-8 (Version None)
Quarter: 2012Q2

REPORT INFORMATION
  Report Type: 
  Country: None (occurrence: None)
  Receive Date: 20120430
  Receipt Date: 20120419
  Transmission Date: 20120825
  Serious: Yes (Hospitalization, Other)
  Sender: FDA-Public Use
  Company Number: PHHY2012BR031336

PATIENT
  Sex: Female

DRUGS (2)
  1. GILENYA [Suspect]
     Dosage: 0.5 MG,
     Route: 048
  2. EQUILID [Suspect]

REACTIONS (4)
  - FEELING COLD [None]
  - MOVEMENT DISORDER [None]
  - TONGUE DISORDER [None]
  - LIMB DEFORMITY [None]
